FAERS Safety Report 4431404-9 (Version None)
Quarter: 2004Q3

REPORT INFORMATION
  Report Type: 
  Country: None (occurrence: None)
  Receive Date: 20040824
  Receipt Date: 20040219
  Transmission Date: 20050211
  Serious: Yes (Other)
  Sender: FDA-Public Use
  Company Number: US-GLAXOSMITHKLINE-A0498850A

PATIENT
  Age: 58 Year
  Sex: Female

DRUGS (6)
  1. PAXIL [Suspect]
     Indication: DEPRESSION
     Dosage: 10MG PER DAY
     Route: 048
     Dates: start: 19990101
  2. PAROXETINE HCL [Suspect]
     Indication: DEPRESSION
     Dosage: 5MG PER DAY
     Route: 048
     Dates: start: 20040217
  3. DIOVAN HCT [Concomitant]
  4. NORVASC [Concomitant]
  5. PEPTO BISMOL [Concomitant]
     Indication: DIARRHOEA
  6. DEPAKOTE [Concomitant]

REACTIONS (15)
  - ALOPECIA [None]
  - ANXIETY [None]
  - DEPRESSION [None]
  - DIARRHOEA [None]
  - DRUG INEFFECTIVE [None]
  - FEELING DRUNK [None]
  - FEMALE PATTERN BALDNESS [None]
  - HIRSUTISM [None]
  - HYPERTRICHOSIS [None]
  - INSOMNIA [None]
  - MANIA [None]
  - NAUSEA [None]
  - NEGATIVE THOUGHTS [None]
  - SOMNOLENCE [None]
  - THINKING ABNORMAL [None]
